FAERS Safety Report 17975329 (Version 4)
Quarter: 2020Q4

REPORT INFORMATION
  Report Type: Spontaneous
  Country: US (occurrence: US)
  Receive Date: 20200702
  Receipt Date: 20201013
  Transmission Date: 20210113
  Serious: Yes (Life-Threatening, Hospitalization, Other)
  Sender: FDA-Public Use
  Company Number: US-B.I. PHARMACEUTICALS,INC./RIDGEFIELD-2020-BI-032801

PATIENT
  Age: 54 Year
  Sex: Female
  Weight: 122.5 kg

DRUGS (20)
  1. CRESTOR [Concomitant]
     Active Substance: ROSUVASTATIN CALCIUM
     Indication: PRODUCT USED FOR UNKNOWN INDICATION
     Dosage: CRESTOR 20 MG ORAL TABLET 20 MG = 1 TAB, ORAL, QHS?EVERY BEDTIME
     Route: 048
  2. VITAMINS NOS [Concomitant]
     Active Substance: VITAMINS
     Indication: PRODUCT USED FOR UNKNOWN INDICATION
     Dosage: MULTIVITAMIN 1 TAB, ORAL, DAILY
     Route: 048
  3. VITAMIN B12 [HYDROXOCOBALAMIN] [Concomitant]
     Active Substance: HYDROXOCOBALAMIN
     Indication: PRODUCT USED FOR UNKNOWN INDICATION
     Dosage: VITAMIN B-12 1000 MCG ORAL TABLET 1,000 MCG = 1 TAB, ORAL, DAILY
     Route: 048
  4. ASPIRIN 81 [Concomitant]
     Active Substance: ASPIRIN
     Indication: PRODUCT USED FOR UNKNOWN INDICATION
     Dosage: ASPIRIN 81 MG ORAL DELAYED RELEASE TABLET 81 MG = 1 TAB, ORAL, DAILY
     Route: 048
  5. NORCO [Concomitant]
     Active Substance: ACETAMINOPHEN\HYDROCODONE BITARTRATE
     Indication: PRODUCT USED FOR UNKNOWN INDICATION
     Dosage: NORCO 10 MG-325 MG ORAL TABLET 1 TAB, PRN, ORAL, Q4HR FREQUENCY:
     Route: 048
  6. DULOXETINE. [Concomitant]
     Active Substance: DULOXETINE
     Indication: PRODUCT USED FOR UNKNOWN INDICATION
     Dosage: DULOXETINE 30 MG ORAL DELAYED RELEASE CAPSULE 60 MG = 2 CAP, ORAL, DAILY
     Route: 048
  7. FOLIC ACID. [Concomitant]
     Active Substance: FOLIC ACID
     Indication: PRODUCT USED FOR UNKNOWN INDICATION
     Dosage: FOLIC ACID 1 MG ORAL TABLET 1 MG = 1 TAB, ORAL, DAILY
     Route: 048
  8. LANTUS [Concomitant]
     Active Substance: INSULIN GLARGINE
     Indication: PRODUCT USED FOR UNKNOWN INDICATION
     Dosage: LANTUS 100 UNITS/ML SUBCUTANEOUS SOLUTION 75 UNITS, SUBCUTANEOUS, QHS
     Route: 058
  9. VITAMIN D3 [Concomitant]
     Active Substance: CHOLECALCIFEROL
     Indication: PRODUCT USED FOR UNKNOWN INDICATION
     Dosage: VITAMIN D3 1000 INTL UNITS ORAL TABLET 1,000 INTLUNIT = 1 TAB, ORAL, DAILY
     Route: 048
  10. ZONISAMIDE. [Concomitant]
     Active Substance: ZONISAMIDE
     Indication: PRODUCT USED FOR UNKNOWN INDICATION
     Dosage: ZONISAMIDE 100 MG ORAL CAPSULE 100 MG = 1 CAP, ORAL, DAILY
     Route: 048
  11. ARIPIPRAZOLE. [Concomitant]
     Active Substance: ARIPIPRAZOLE
     Indication: PRODUCT USED FOR UNKNOWN INDICATION
     Dosage: ARIPIPRAZOLE 10 MG ORAL TABLET 10 MG = 1 TAB, ORAL, DAILY
     Route: 048
  12. INSULIN LISPRO [Concomitant]
     Active Substance: INSULIN LISPRO
     Indication: PRODUCT USED FOR UNKNOWN INDICATION
     Dosage: INSULIN LISPRO 100 UNITS/ML INJECTABLE SOLUTION STANDARD, SUBCUTANEOUS, ACHS
     Route: 058
  13. NYSTATIN. [Concomitant]
     Active Substance: NYSTATIN
     Indication: PRODUCT USED FOR UNKNOWN INDICATION
     Dosage: NYSTATIN 100,000 UNITS/G TOPICAL POWDER 1 APP, TOP, BID
     Route: 061
  14. POTASSIUM CHLORIDE. [Concomitant]
     Active Substance: POTASSIUM CHLORIDE
     Indication: PRODUCT USED FOR UNKNOWN INDICATION
     Dosage: POTASSIUM CHLORIDE 10 MEQ ORAL CAPSULE, EXTENDED RELEASE 10 MEQ = 1 CAP, ORAL, DAILY
     Route: 048
  15. BUMETANIDE. [Concomitant]
     Active Substance: BUMETANIDE
     Indication: PRODUCT USED FOR UNKNOWN INDICATION
     Dosage: BUMETANIDE 1 MG ORAL TABLET 1 MG = 1 TAB, ORAL, DAILY
     Route: 048
  16. COLLAGENASE SANTYL [Concomitant]
     Active Substance: COLLAGENASE CLOSTRIDIUM HISTOLYTICUM
     Indication: PRODUCT USED FOR UNKNOWN INDICATION
     Dosage: SANTYL 1 APP, TOP, DAILY
     Route: 061
  17. JARDIANCE [Suspect]
     Active Substance: EMPAGLIFLOZIN
     Indication: TYPE 2 DIABETES MELLITUS
     Dosage: EVERY MORNING
     Route: 048
     Dates: start: 20170810, end: 201811
  18. DIFLUCAN [Concomitant]
     Active Substance: FLUCONAZOLE
     Indication: PRODUCT USED FOR UNKNOWN INDICATION
     Dosage: DIFLUCAN 150 MG ORAL TABLET 150 MG = 1 TAB, ORAL, Q72HR
     Route: 048
  19. METOPROLOL TARTRATE. [Concomitant]
     Active Substance: METOPROLOL TARTRATE
     Indication: PRODUCT USED FOR UNKNOWN INDICATION
     Dosage: METOPROLOL TARTRATE 25 MG ORAL TABLET 25 MG = 1 TAB, ORAL, DAILY
     Route: 048
  20. ONDANSETRON [Concomitant]
     Active Substance: ONDANSETRON
     Indication: PRODUCT USED FOR UNKNOWN INDICATION
     Dosage: ONDANSETRON 4 MG ORAL TABLET, DISINTEGRATING 4 MG = 1 TAB, PRN, ORAL, Q6HR FREQUENCY:
     Route: 048

REACTIONS (9)
  - Pain [Unknown]
  - Sepsis [Unknown]
  - Muscular weakness [Unknown]
  - Fournier^s gangrene [Unknown]
  - Encephalopathy [Unknown]
  - Tachypnoea [Unknown]
  - Sinus tachycardia [Unknown]
  - Diabetic ketoacidosis [Unknown]
  - Urinary tract candidiasis [Unknown]

NARRATIVE: CASE EVENT DATE: 20180726
